FAERS Safety Report 4309332-9 (Version None)
Quarter: 2004Q1

REPORT INFORMATION
  Report Type: 
  Country: None (occurrence: None)
  Receive Date: 20040302
  Receipt Date: 20040223
  Transmission Date: 20041129
  Serious: Yes (Hospitalization)
  Sender: FDA-Public Use
  Company Number: FR-GLAXOSMITHKLINE-B0324205A

PATIENT
  Age: 40 Year
  Sex: Female

DRUGS (1)
  1. AUGMENTIN [Suspect]
     Route: 065

REACTIONS (3)
  - DERMATITIS BULLOUS [None]
  - LUNG DISORDER [None]
  - TOXIC EPIDERMAL NECROLYSIS [None]
